FAERS Safety Report 4773860-2 (Version None)
Quarter: 2005Q3

REPORT INFORMATION
  Report Type: 
  Country: None (occurrence: None)
  Receive Date: 20050919
  Receipt Date: 20050912
  Transmission Date: 20060218
  Serious: Yes (Hospitalization, Other)
  Sender: FDA-Public Use
  Company Number: HQWYE398912SEP05

PATIENT
  Age: 59 Year
  Sex: Male

DRUGS (10)
  1. CYCLOSPORINE [Suspect]
     Indication: PROPHYLAXIS AGAINST TRANSPLANT REJECTION
     Dosage: 315 MG 1X PER 1 DAY; 225 MG 1X PER 1 DAY
     Route: 048
     Dates: start: 20050101
  2. CYCLOSPORINE [Suspect]
     Indication: PROPHYLAXIS AGAINST TRANSPLANT REJECTION
     Dosage: 315 MG 1X PER 1 DAY; 225 MG 1X PER 1 DAY
     Route: 048
     Dates: start: 20050723
  3. MEROPENEM (MEROPENEM) [Concomitant]
  4. GANCICLOVIR SODIUM [Concomitant]
  5. RANITIDINE HYDROCHLORIDE [Concomitant]
  6. ARANESP [Concomitant]
  7. TRIMETHOPRIM [Concomitant]
  8. SULBACTAM (SULBACTAM) [Concomitant]
  9. MYCOPHENOLATE MOFETIL (MYCOPHENOLATE MOFETIL) [Concomitant]
  10. METHYLPREDNISOLONE [Concomitant]

REACTIONS (6)
  - BLOOD CREATININE INCREASED [None]
  - BLOOD UREA INCREASED [None]
  - COMPLICATIONS OF TRANSPLANTED KIDNEY [None]
  - DRUG LEVEL DECREASED [None]
  - HAEMODIALYSIS [None]
  - POST PROCEDURAL COMPLICATION [None]
